FAERS Safety Report 6037349-5 (Version None)
Quarter: 2009Q1

REPORT INFORMATION
  Report Type: 
  Country: None (occurrence: None)
  Receive Date: 20090114
  Receipt Date: 20090106
  Transmission Date: 20090719
  Serious: Yes (Other)
  Sender: FDA-Public Use
  Company Number: IR-GENENTECH-275089

PATIENT

DRUGS (2)
  1. BEVACIZUMAB [Suspect]
     Indication: DIABETIC RETINAL OEDEMA
     Dosage: 1.25 MG, UNK
     Route: 031
  2. TRIAMCINOLONE ACETONIDE [Suspect]
     Indication: DIABETIC RETINAL OEDEMA
     Dosage: 2 MG, UNK
     Route: 031

REACTIONS (1)
  - CATARACT [None]
